FAERS Safety Report 16419648 (Version 1)
Quarter: 2019Q2

REPORT INFORMATION
  Report Type: Spontaneous
  Country: US (occurrence: US)
  Receive Date: 20190612
  Receipt Date: 20190612
  Transmission Date: 20190711
  Serious: Yes (Other)
  Sender: FDA-Public Use
  Company Number: US-SCA PHARMACEUTICALS-2019SCA00019

PATIENT
  Age: 27 Year
  Sex: Female
  Weight: 76.7 kg

DRUGS (10)
  1. HYDRALAZINE [Concomitant]
     Active Substance: HYDRALAZINE HYDROCHLORIDE
     Dosage: 10 MG, 4X/DAY
  2. RANITIDINE. [Concomitant]
     Active Substance: RANITIDINE
     Dosage: 75 MG, 2X/DAY
     Route: 048
  3. VENTOLIN HFA [Concomitant]
     Active Substance: ALBUTEROL SULFATE
     Dosage: 2 DOSAGE UNITS, UP TO 4X/DAY AS NEEDED
  4. FENTANYL AND BUPIVACAINE [Suspect]
     Active Substance: BUPIVACAINE\FENTANYL
     Indication: LABOUR PAIN
     Dosage: 5 ML,  25ML/1HR, 15 MINUTE LOCK OUT
     Route: 008
     Dates: start: 20190427, end: 20190427
  5. FENTANYL AND BUPIVACAINE [Suspect]
     Active Substance: BUPIVACAINE\FENTANYL
     Dosage: 5 ML,  25ML/1HR, 15 MINUTE LOCK OUT
     Route: 008
     Dates: start: 20190427
  6. FENTANYL AND BUPIVACAINE [Suspect]
     Active Substance: BUPIVACAINE\FENTANYL
     Dosage: PCEA DOSE X 2 IF NEEDED
     Route: 008
     Dates: start: 20190427
  7. NIFEDIPINE CR [Concomitant]
     Active Substance: NIFEDIPINE
     Dosage: 60 MG, 2X/DAY
  8. PRENATAL VIT-FE FUMARATE-FA [Concomitant]
     Dosage: 1 TABLETS, 1X/DAY
     Route: 048
  9. FERROUS GLUCONATE [Concomitant]
     Active Substance: FERROUS GLUCONATE
     Dosage: 324 MG, 1X/DAY WITH BREAKFAST
     Route: 048
  10. FERROUS SULFATE. [Concomitant]
     Active Substance: FERROUS SULFATE
     Dosage: 325 MG, 2X/DAY
     Route: 048

REACTIONS (5)
  - Dyspnoea [Recovering/Resolving]
  - Anxiety [Recovering/Resolving]
  - Therapeutic product effect increased [Recovered/Resolved]
  - Hypoaesthesia [Recovering/Resolving]
  - Product label issue [Unknown]

NARRATIVE: CASE EVENT DATE: 20190427
